FAERS Safety Report 10530113 (Version 1)
Quarter: 2014Q4

REPORT INFORMATION
  Report Type: Spontaneous
  Country: US (occurrence: US)
  Receive Date: 20141021
  Receipt Date: 20141021
  Transmission Date: 20150528
  Serious: No
  Sender: FDA-Public Use
  Company Number: US-PFIZER INC-2014285007

PATIENT
  Age: 70 Year
  Sex: Female
  Weight: 77 kg

DRUGS (7)
  1. MELOXICAM. [Concomitant]
     Active Substance: MELOXICAM
     Dosage: 7.5 MG, 1X/DAY
  2. HYDROCODONE/PARACETAMOL [Concomitant]
     Dosage: [HYDROCODONE 5MG/ PARACETAMOL 325MG], UNK
  3. HYDROCHLOROTHIAZIDE/TRIAMTERENE [Concomitant]
     Dosage: [TRIAMTERENE 37.5MG AND HYDROCHLOROTHIZIDE 25MG], UNK
  4. DEPO-MEDROL [Suspect]
     Active Substance: METHYLPREDNISOLONE ACETATE
     Indication: OSTEOARTHRITIS
     Dosage: STRENGTH 40 MG/ML, SINGLE
     Route: 014
     Dates: start: 20141013, end: 20141013
  5. ANASTROZOLE. [Concomitant]
     Active Substance: ANASTROZOLE
     Dosage: 1 MG, 1X/DAY
  6. CLONIDINE. [Concomitant]
     Active Substance: CLONIDINE
     Dosage: 0.1 MG, 1X/DAY
  7. VENLAFAXINE ER [Concomitant]
     Active Substance: VENLAFAXINE HYDROCHLORIDE
     Dosage: 150 MG, 1X/DAY

REACTIONS (1)
  - Headache [Not Recovered/Not Resolved]

NARRATIVE: CASE EVENT DATE: 20141014
